FAERS Safety Report 6505058-1 (Version None)
Quarter: 2009Q4

REPORT INFORMATION
  Report Type: 
  Country: None (occurrence: None)
  Receive Date: 20091218
  Receipt Date: 20091210
  Transmission Date: 20100525
  Serious: Yes (Other)
  Sender: FDA-Public Use
  Company Number: US-JNJFOC-20091204241

PATIENT
  Sex: Female
  Weight: 78.93 kg

DRUGS (2)
  1. DURAGESIC-100 [Suspect]
     Indication: BACK PAIN
     Route: 062
  2. DURAGESIC-100 [Suspect]
     Route: 062

REACTIONS (7)
  - ABNORMAL LOSS OF WEIGHT [None]
  - ARACHNOIDITIS [None]
  - BODY HEIGHT DECREASED [None]
  - KYPHOSIS [None]
  - NEPHROLITHIASIS [None]
  - PAIN [None]
  - SPINAL DEFORMITY [None]
